FAERS Safety Report 17301445 (Version 1)
Quarter: 2020Q1

REPORT INFORMATION
  Report Type: Spontaneous
  Country: IT (occurrence: IT)
  Receive Date: 20200122
  Receipt Date: 20200122
  Transmission Date: 20200409
  Serious: Yes (Hospitalization)
  Sender: FDA-Public Use
  Company Number: IT-PFIZER INC-2020024500

PATIENT
  Age: 76 Year
  Sex: Female

DRUGS (12)
  1. TYGACIL [Suspect]
     Active Substance: TIGECYCLINE
     Indication: ACINETOBACTER INFECTION
     Dosage: 1 DF, 1X/DAY
     Route: 042
     Dates: start: 20191217
  2. CLEXANE T [Concomitant]
     Active Substance: ENOXAPARIN SODIUM
  3. LEVETIRACETAM. [Concomitant]
     Active Substance: LEVETIRACETAM
     Dosage: 750 MG, UNK
  4. URBASON [METHYLPREDNISOLONE] [Concomitant]
     Active Substance: METHYLPREDNISOLONE
  5. BREVA [Concomitant]
     Active Substance: ALBUTEROL\IPRATROPIUM
  6. COLISTIMETATO ACCORD [Suspect]
     Active Substance: COLISTIMETHATE SODIUM
     Indication: ACINETOBACTER INFECTION
     Dosage: 9 DF, 1X/DAY
     Route: 042
     Dates: start: 20191217
  7. INFECTOFOS [Suspect]
     Active Substance: FOSFOMYCIN SODIUM
     Indication: ACINETOBACTER INFECTION
     Dosage: 4 DF, 1X/DAY
     Route: 042
     Dates: start: 20191206
  8. PANTOPRAZOLE [Concomitant]
     Active Substance: PANTOPRAZOLE
     Dosage: 40 MG, UNK
     Route: 042
  9. DEPAKIN [Concomitant]
     Active Substance: VALPROATE SODIUM
  10. MEROPENEM AUROBINDO [Suspect]
     Active Substance: MEROPENEM
     Indication: ACINETOBACTER INFECTION
     Dosage: 4 DF, 1X/DAY
     Route: 042
     Dates: start: 20191217
  11. SOLUVIT [ASCORBIC ACID;BIOTIN;CALCIUM PANTOTHENATE;CYANOCOBALAMIN;FOLI [Concomitant]
     Active Substance: VITAMINS
  12. FLUIMUCIL [Concomitant]
     Active Substance: ACETYLCYSTEINE

REACTIONS (3)
  - Meningitis [Unknown]
  - Dysbiosis [Unknown]
  - Off label use [Unknown]

NARRATIVE: CASE EVENT DATE: 20191218
